FAERS Safety Report 11552958 (Version 3)
Quarter: 2016Q1

REPORT INFORMATION
  Report Type: Spontaneous
  Country: US (occurrence: US)
  Receive Date: 20150925
  Receipt Date: 20160112
  Transmission Date: 20160525
  Serious: No
  Sender: FDA-Public Use
  Company Number: US-009507513-1509USA008972

PATIENT
  Age: 19 Year
  Sex: Female
  Weight: 81.18 kg

DRUGS (2)
  1. NEXPLANON [Suspect]
     Active Substance: ETONOGESTREL
     Indication: CONTRACEPTION
     Dosage: ONE IMPLANT/ ONCE PER THREE YEARS
     Route: 059
     Dates: start: 201506, end: 20151007
  2. NEXPLANON [Suspect]
     Active Substance: ETONOGESTREL
     Indication: MENORRHAGIA
     Dosage: ONE IMPLANT/ ONCE PER THREE YEARS
     Route: 059
     Dates: start: 20151007

REACTIONS (12)
  - Vulvovaginal burning sensation [Unknown]
  - Implant site erythema [Not Recovered/Not Resolved]
  - Pain in extremity [Recovered/Resolved]
  - Body mass index increased [Unknown]
  - Product use issue [Unknown]
  - Discomfort [Not Recovered/Not Resolved]
  - Menstruation irregular [Unknown]
  - Device dislocation [Recovered/Resolved]
  - Vaginal discharge [Unknown]
  - Implant site irritation [Not Recovered/Not Resolved]
  - Device deployment issue [Recovered/Resolved]
  - Scar [Not Recovered/Not Resolved]

NARRATIVE: CASE EVENT DATE: 2015
